FAERS Safety Report 19405939 (Version 2)
Quarter: 2021Q2

REPORT INFORMATION
  Report Type: Spontaneous
  Country: US (occurrence: US)
  Receive Date: 20210611
  Receipt Date: 20210630
  Transmission Date: 20210717
  Serious: Yes (Other)
  Sender: FDA-Public Use
  Company Number: US-ASTRAZENECA-2021A500655

PATIENT
  Sex: Male
  Weight: 104.3 kg

DRUGS (2)
  1. BYDUREON [Suspect]
     Active Substance: EXENATIDE
     Indication: GLYCOSYLATED HAEMOGLOBIN INCREASED
     Route: 065
  2. BYDUREON [Concomitant]
     Active Substance: EXENATIDE

REACTIONS (9)
  - Incorrect dose administered by device [Unknown]
  - Injection site mass [Unknown]
  - Localised infection [Unknown]
  - Injury [Unknown]
  - Device use issue [Unknown]
  - Peripheral swelling [Unknown]
  - Wrong technique in device usage process [Unknown]
  - Device issue [Unknown]
  - Device delivery system issue [Unknown]
